FAERS Safety Report 6854021-X (Version None)
Quarter: 2010Q3

REPORT INFORMATION
  Report Type: 
  Country: None (occurrence: None)
  Receive Date: 20100717
  Receipt Date: 20071220
  Transmission Date: 20110219
  Serious: No
  Sender: FDA-Public Use
  Company Number: US-PFIZER INC-2008000103

PATIENT
  Sex: Female

DRUGS (9)
  1. CHANTIX [Suspect]
  2. XALATAN [Concomitant]
  3. AMLODIPINE [Concomitant]
  4. DEPAKOTE [Concomitant]
  5. HYDROCHLOROTHIAZIDE [Concomitant]
  6. ALBUTEROL [Concomitant]
  7. ZOLPIDEM TARTRATE [Concomitant]
  8. VYTORIN [Concomitant]
  9. PREDNISOLONE [Concomitant]

REACTIONS (3)
  - ABNORMAL DREAMS [None]
  - HEADACHE [None]
  - NAUSEA [None]
